FAERS Safety Report 8207346-X (Version None)
Quarter: 2012Q1

REPORT INFORMATION
  Report Type: 
  Country: None (occurrence: None)
  Receive Date: 20120314
  Receipt Date: 20120116
  Transmission Date: 20120608
  Serious: No
  Sender: FDA-Public Use
  Company Number: US-GLAXOSMITHKLINE-A0961564A

PATIENT
  Age: 19 Year
  Sex: Male

DRUGS (1)
  1. NICORETTE [Suspect]
     Indication: PRODUCT USED FOR UNKNOWN INDICATION
     Dates: start: 20120116, end: 20120116

REACTIONS (4)
  - ACCIDENTAL EXPOSURE [None]
  - NAUSEA [None]
  - DIZZINESS [None]
  - EUPHORIC MOOD [None]
